FAERS Safety Report 20703500 (Version 2)
Quarter: 2022Q2

REPORT INFORMATION
  Report Type: Spontaneous
  Country: BR (occurrence: BR)
  Receive Date: 20220413
  Receipt Date: 20220426
  Transmission Date: 20220721
  Serious: Yes (Disabling)
  Sender: FDA-Public Use
  Company Number: BR-ORGANON-O2204BRA000811

PATIENT
  Age: 30 Year
  Sex: Female
  Weight: 70 kg

DRUGS (1)
  1. ETONOGESTREL [Suspect]
     Active Substance: ETONOGESTREL
     Indication: Contraception
     Dosage: 1 IMPLANT IN LEFT ARM
     Route: 059
     Dates: start: 20210615

REACTIONS (2)
  - Heavy menstrual bleeding [Not Recovered/Not Resolved]
  - Feeling abnormal [Not Recovered/Not Resolved]

NARRATIVE: CASE EVENT DATE: 20210801
